FAERS Safety Report 5630626-9 (Version None)
Quarter: 2008Q1

REPORT INFORMATION
  Report Type: 
  Country: None (occurrence: None)
  Receive Date: 20080219
  Receipt Date: 20080219
  Transmission Date: 20080703
  Serious: Yes (Disabling)
  Sender: FDA-Public Use
  Company Number: AU-PURDUE-USA_2008_0031052

PATIENT
  Age: 50 Year
  Sex: Female

DRUGS (1)
  1. DILAUDID-HP [Suspect]
     Indication: PAIN
     Dates: start: 20070911

REACTIONS (7)
  - DRUG WITHDRAWAL SYNDROME [None]
  - EPIDERMOLYSIS [None]
  - ERYTHEMA [None]
  - INADEQUATE ANALGESIA [None]
  - INCORRECT DOSE ADMINISTERED [None]
  - RASH [None]
  - SKIN DISORDER [None]
